FAERS Safety Report 4458201-2 (Version None)
Quarter: 2004Q3

REPORT INFORMATION
  Report Type: 
  Country: None (occurrence: None)
  Receive Date: 20040922
  Receipt Date: 20040906
  Transmission Date: 20050211
  Serious: Yes (Death)
  Sender: FDA-Public Use
  Company Number: GBS040915533

PATIENT
  Age: 55 Year
  Sex: Male

DRUGS (2)
  1. OLANZAPINE [Suspect]
     Dosage: 10 MG
     Dates: start: 20030805, end: 20040501
  2. VENLAFAXINE [Concomitant]

REACTIONS (2)
  - CARDIAC FAILURE [None]
  - MYOCARDIAL ISCHAEMIA [None]
